FAERS Safety Report 15285302 (Version 1)
Quarter: 2018Q3

REPORT INFORMATION
  Report Type: Other
  Country: FR (occurrence: FR)
  Receive Date: 20180816
  Receipt Date: 20180816
  Transmission Date: 20181010
  Serious: Yes (Hospitalization)
  Sender: FDA-Public Use
  Company Number: FR-CELLTRION INC.-2018FR021811

PATIENT

DRUGS (3)
  1. IMUREL                             /00001501/ [Suspect]
     Active Substance: AZATHIOPRINE SODIUM
     Indication: CROHN^S DISEASE
     Dosage: 150 MG, DAILY
     Route: 048
     Dates: start: 201711
  2. REMSIMA [Suspect]
     Active Substance: INFLIXIMAB
     Indication: CROHN^S DISEASE
     Dosage: 600 MG
     Route: 042
     Dates: start: 201711, end: 201711
  3. REMSIMA [Suspect]
     Active Substance: INFLIXIMAB
     Dosage: 600 MG
     Route: 042
     Dates: start: 20180115, end: 20180115

REACTIONS (1)
  - Ischaemic stroke [Recovered/Resolved]

NARRATIVE: CASE EVENT DATE: 20180304
